FAERS Safety Report 8957290 (Version 1)
Quarter: 2012Q4

REPORT INFORMATION
  Report Type: 
  Country: FR (occurrence: FR)
  Receive Date: 20121211
  Receipt Date: 20121211
  Transmission Date: 20130627
  Serious: Yes (Hospitalization)
  Sender: FDA-Public Use
  Company Number: FR-ROCHE-1162084

PATIENT
  Age: 87 Year
  Sex: Male

DRUGS (14)
  1. ROCEPHINE [Suspect]
     Indication: CHOLECYSTITIS
     Route: 042
     Dates: start: 20121017, end: 20121023
  2. FLAGYL [Suspect]
     Indication: CHOLECYSTITIS
     Route: 042
     Dates: start: 20121017, end: 20121023
  3. EBIXA [Concomitant]
     Route: 065
  4. DAFALGAN [Concomitant]
     Route: 065
  5. TRAMADOL [Concomitant]
     Route: 065
  6. TRANSIPEG (FRANCE) [Concomitant]
     Route: 065
  7. PREVISCAN [Concomitant]
     Route: 065
  8. LASILIX [Concomitant]
     Route: 065
  9. TIAPRIDAL [Concomitant]
     Route: 065
  10. VITAMIN B1 [Concomitant]
  11. VITAMIN B6 [Concomitant]
  12. VALIUM [Concomitant]
     Route: 065
  13. DIFFU K [Concomitant]
     Route: 065
  14. TRIATEC [Concomitant]
     Route: 065

REACTIONS (1)
  - Pancreatitis acute [Recovered/Resolved]
